FAERS Safety Report 10336970 (Version 4)
Quarter: 2014Q4

REPORT INFORMATION
  Report Type: Report from Study
  Country: US (occurrence: US)
  Receive Date: 20140723
  Receipt Date: 20141101
  Transmission Date: 20150528
  Serious: Yes (Other)
  Sender: FDA-Public Use
  Company Number: US-ABBVIE-14P-163-1202874-00

PATIENT
  Age: 63 Year
  Sex: Female
  Weight: 55.84 kg

DRUGS (18)
  1. HUMIRA [Suspect]
     Active Substance: ADALIMUMAB
     Route: 065
     Dates: start: 20140313, end: 20140423
  2. HUMIRA [Suspect]
     Active Substance: ADALIMUMAB
     Dosage: ONE DOSE
     Route: 065
     Dates: start: 20140519, end: 20140519
  3. UCERIS [Suspect]
     Active Substance: BUDESONIDE
     Indication: CROHN^S DISEASE
     Route: 065
     Dates: start: 201404, end: 20140430
  4. IRON [Concomitant]
     Active Substance: IRON
     Indication: IRON DEFICIENCY
     Route: 048
  5. LEVOXYL [Concomitant]
     Active Substance: LEVOTHYROXINE SODIUM
     Indication: HYPOTHYROIDISM
  6. VITAMIN D [Concomitant]
     Active Substance: CHOLECALCIFEROL
     Indication: VITAMIN D DEFICIENCY
  7. VITAMIN D [Concomitant]
     Active Substance: CHOLECALCIFEROL
     Indication: VITAMIN SUPPLEMENTATION
  8. LEVOXYL [Concomitant]
     Active Substance: LEVOTHYROXINE SODIUM
     Indication: AUTOIMMUNE THYROIDITIS
     Route: 048
  9. HUMIRA [Suspect]
     Active Substance: ADALIMUMAB
     Route: 065
     Dates: start: 20140227
  10. HUMIRA [Suspect]
     Active Substance: ADALIMUMAB
     Route: 065
     Dates: start: 201406
  11. UCERIS [Suspect]
     Active Substance: BUDESONIDE
     Indication: CLOSTRIDIUM TEST POSITIVE
     Route: 065
     Dates: start: 20140425
  12. CHOLESTYRAMINE. [Concomitant]
     Active Substance: CHOLESTYRAMINE
     Indication: DIARRHOEA
     Route: 048
     Dates: start: 201404
  13. HUMIRA [Suspect]
     Active Substance: ADALIMUMAB
     Indication: INFLAMMATORY BOWEL DISEASE
     Dosage: DAY 15
     Route: 065
     Dates: start: 20140213, end: 20140213
  14. LEVEMIR [Suspect]
     Active Substance: INSULIN DETEMIR
     Indication: TYPE 2 DIABETES MELLITUS
     Dosage: EVERY MORNING
     Route: 058
     Dates: end: 201406
  15. HUMIRA [Suspect]
     Active Substance: ADALIMUMAB
     Indication: CROHN^S DISEASE
     Dosage: LOADING DOSE
     Route: 065
     Dates: start: 20140130, end: 20140130
  16. CORTEF [Concomitant]
     Active Substance: HYDROCORTISONE
     Indication: ADDISON^S DISEASE
     Dosage: 15 MG IN MORNING, 10MG X2 IN EVENING
  17. HUMIRA [Suspect]
     Active Substance: ADALIMUMAB
     Route: 065
     Dates: start: 20140602, end: 20140602
  18. IRON [Concomitant]
     Active Substance: IRON
     Indication: ANAEMIA

REACTIONS (70)
  - Splenic lesion [Not Recovered/Not Resolved]
  - Rib fracture [Recovering/Resolving]
  - Faeces discoloured [Unknown]
  - Gastric hypermotility [Unknown]
  - Abdominal pain [Not Recovered/Not Resolved]
  - Dyspepsia [Unknown]
  - Breath odour [Not Recovered/Not Resolved]
  - Dysgeusia [Not Recovered/Not Resolved]
  - Cough [Not Recovered/Not Resolved]
  - Nausea [Not Recovered/Not Resolved]
  - Dysphonia [Not Recovered/Not Resolved]
  - Muscle spasms [Not Recovered/Not Resolved]
  - Gait disturbance [Not Recovered/Not Resolved]
  - Injection site bruising [Not Recovered/Not Resolved]
  - Weight decreased [Not Recovered/Not Resolved]
  - Flank pain [Recovering/Resolving]
  - Skin wrinkling [Unknown]
  - Clostridium test positive [Not Recovered/Not Resolved]
  - Glycosylated haemoglobin increased [Unknown]
  - Peripheral swelling [Not Recovered/Not Resolved]
  - Arthralgia [Not Recovered/Not Resolved]
  - Rectal haemorrhage [Unknown]
  - Gingival discolouration [Not Recovered/Not Resolved]
  - Injection site pain [Recovered/Resolved]
  - Dry skin [Not Recovered/Not Resolved]
  - Hypersensitivity [Not Recovered/Not Resolved]
  - Clostridium difficile infection [Unknown]
  - Joint swelling [Not Recovered/Not Resolved]
  - Decreased appetite [Unknown]
  - Frequent bowel movements [Recovering/Resolving]
  - Musculoskeletal stiffness [Recovered/Resolved]
  - Arthralgia [Unknown]
  - Toothache [Not Recovered/Not Resolved]
  - Skin exfoliation [Unknown]
  - Immunodeficiency [Unknown]
  - Peripheral swelling [Recovering/Resolving]
  - Contusion [Not Recovered/Not Resolved]
  - Fall [Unknown]
  - Haematochezia [Unknown]
  - Nausea [Unknown]
  - Gingival pain [Not Recovered/Not Resolved]
  - Vomiting [Unknown]
  - Skin fissures [Not Recovered/Not Resolved]
  - Vein disorder [Recovering/Resolving]
  - Laceration [Unknown]
  - Splenomegaly [Not Recovered/Not Resolved]
  - Musculoskeletal stiffness [Unknown]
  - Injection site pain [Not Recovered/Not Resolved]
  - Drug ineffective [Unknown]
  - Blood glucose decreased [Not Recovered/Not Resolved]
  - Erythema [Recovered/Resolved]
  - Swelling [Not Recovered/Not Resolved]
  - Swelling [Recovering/Resolving]
  - Wound haemorrhage [Unknown]
  - Hypotension [Not Recovered/Not Resolved]
  - Swollen tongue [Not Recovered/Not Resolved]
  - Abdominal distension [Recovered/Resolved]
  - Gastric varices [Not Recovered/Not Resolved]
  - Lid sulcus deepened [Unknown]
  - Contusion [Unknown]
  - Skin discolouration [Unknown]
  - Asthenia [Unknown]
  - Back pain [Unknown]
  - Haematochezia [Not Recovered/Not Resolved]
  - Middle insomnia [Not Recovered/Not Resolved]
  - Unevaluable event [Not Recovered/Not Resolved]
  - Pain in extremity [Not Recovered/Not Resolved]
  - Fluid retention [Unknown]
  - Alanine aminotransferase increased [Unknown]
  - Aspartate aminotransferase increased [Unknown]

NARRATIVE: CASE EVENT DATE: 2014
